FAERS Safety Report 25941605 (Version 1)
Quarter: 2025Q4

REPORT INFORMATION
  Report Type: Spontaneous
  Country: EU (occurrence: EU)
  Receive Date: 20251020
  Receipt Date: 20251020
  Transmission Date: 20260118
  Serious: Yes (Hospitalization)
  Sender: JOHNSON AND JOHNSON
  Company Number: None

PATIENT
  Age: 15 Year
  Sex: Female
  Weight: 31 kg

DRUGS (2)
  1. RISPERDAL [Suspect]
     Active Substance: RISPERIDONE
     Indication: Behaviour disorder
     Route: 048
     Dates: start: 20250918, end: 20250918
  2. RISPERDAL [Suspect]
     Active Substance: RISPERIDONE

REACTIONS (4)
  - Somnolence [Recovered/Resolved]
  - Hypotension [Recovered/Resolved]
  - Wrong dose [Recovered/Resolved]
  - Accidental overdose [Recovered/Resolved]

NARRATIVE: CASE EVENT DATE: 20250918
